FAERS Safety Report 6275535-X (Version None)
Quarter: 2009Q3

REPORT INFORMATION
  Report Type: 
  Country: None (occurrence: None)
  Receive Date: 20090721
  Receipt Date: 20090709
  Transmission Date: 20100115
  Serious: Yes (Hospitalization)
  Sender: FDA-Public Use
  Company Number: GR-PFIZER INC-2009238036

PATIENT
  Age: 27 Year

DRUGS (1)
  1. GEODON [Suspect]
     Dosage: 80 MG, 1X/DAY
     Route: 048
     Dates: end: 20090101

REACTIONS (1)
  - ANAPHYLACTIC REACTION [None]
